FAERS Safety Report 7629357-5 (Version None)
Quarter: 2011Q3

REPORT INFORMATION
  Report Type: 
  Country: None (occurrence: None)
  Receive Date: 20110722
  Receipt Date: 20110715
  Transmission Date: 20111222
  Serious: Yes (Hospitalization)
  Sender: FDA-Public Use
  Company Number: US-JNJFOC-20110706965

PATIENT
  Age: 52 Year
  Sex: Male

DRUGS (3)
  1. ULTRAM [Suspect]
     Indication: BACK PAIN
  2. PRILOSEC [Concomitant]
  3. ZESTRIL [Concomitant]

REACTIONS (4)
  - INTENTIONAL DRUG MISUSE [None]
  - TACHYCARDIA [None]
  - CONVULSION [None]
  - DRUG ADMINISTRATION ERROR [None]
